FAERS Safety Report 6404318-2 (Version None)
Quarter: 2009Q4

REPORT INFORMATION
  Report Type: 
  Country: None (occurrence: None)
  Receive Date: 20091013
  Receipt Date: 20091001
  Transmission Date: 20100525
  Serious: Yes (Hospitalization)
  Sender: FDA-Public Use
  Company Number: 2009-03702

PATIENT
  Age: 75 Year
  Sex: Female
  Weight: 110 kg

DRUGS (10)
  1. VELCADE [Suspect]
     Indication: MULTIPLE MYELOMA
     Dosage: 1.3 MG/M2, INTRAVENOUS
     Route: 042
     Dates: start: 20090907
  2. BISOPROLOL FUMARATE [Concomitant]
  3. BUMETANIDE [Concomitant]
  4. ALLOPURINOL [Concomitant]
  5. GLICLAZIDE (GLICLAZIDE) [Concomitant]
  6. THYROXINE ^APS^ (LEVOTHYROXINE SODIUM) [Concomitant]
  7. NORTRIPTYLINE (NIRTRIPTYLINE) [Concomitant]
  8. OMEPRAZOLE [Concomitant]
  9. CODEINE PHOSPHATE AND ACETAMINOPHEN [Concomitant]
  10. DIGOXIN [Concomitant]

REACTIONS (2)
  - ATRIAL FIBRILLATION [None]
  - CONDITION AGGRAVATED [None]
